FAERS Safety Report 4844747-1 (Version None)
Quarter: 2005Q4

REPORT INFORMATION
  Report Type: 
  Country: None (occurrence: None)
  Receive Date: 20051129
  Receipt Date: 20051111
  Transmission Date: 20060501
  Serious: Yes (Other)
  Sender: FDA-Public Use
  Company Number: 2005BH002257

PATIENT
  Age: 35 Year
  Sex: Male

DRUGS (3)
  1. EXTRANEAL [Suspect]
     Dosage: 2000 ML, IP
     Route: 033
     Dates: start: 20050721
  2. BLOOD GLUCOSE MONITOR [Concomitant]
  3. DIANEAL (INPERSOL W/DEXTROSE) [Concomitant]

REACTIONS (2)
  - DEVICE FAILURE [None]
  - HYPOGLYCAEMIA [None]
